FAERS Safety Report 6842887-9 (Version None)
Quarter: 2010Q3

REPORT INFORMATION
  Report Type: 
  Country: None (occurrence: None)
  Receive Date: 20100714
  Receipt Date: 20070813
  Transmission Date: 20110219
  Serious: No
  Sender: FDA-Public Use
  Company Number: US-PFIZER INC-2007067578

PATIENT
  Sex: Female
  Weight: 90.7 kg

DRUGS (6)
  1. CHANTIX [Suspect]
     Indication: SMOKING CESSATION THERAPY
     Dates: start: 20070805
  2. INSULIN [Concomitant]
     Indication: DIABETES MELLITUS
  3. NEURONTIN [Concomitant]
  4. PLAVIX [Concomitant]
  5. ZANAFLEX [Concomitant]
  6. VESICARE [Concomitant]

REACTIONS (2)
  - DRUG INEFFECTIVE [None]
  - HEADACHE [None]
